FAERS Safety Report 18414311 (Version 2)
Quarter: 2020Q4

REPORT INFORMATION
  Report Type: Spontaneous
  Country: US (occurrence: US)
  Receive Date: 20201022
  Receipt Date: 20201106
  Transmission Date: 20210114
  Serious: No
  Sender: FDA-Public Use
  Company Number: US-BAUSCH-BL-2020-030029

PATIENT
  Age: 90 Year
  Sex: Female
  Weight: 49.94 kg

DRUGS (3)
  1. ADVANCED EYE RELIEF DRY EYE REJUVENATION [Suspect]
     Active Substance: GLYCERIN\PROPYLENE GLYCOL
     Indication: PRODUCT USED FOR UNKNOWN INDICATION
     Dosage: STARTED ON SUMMER FORM THE DATE OF FIRST FOLLOW-UP REPORT (SINGLE USE ONLY)
     Route: 065
     Dates: start: 2020, end: 2020
  2. SOOTHE XP [Suspect]
     Active Substance: LIGHT MINERAL OIL\MINERAL OIL
     Indication: PRODUCT USED FOR UNKNOWN INDICATION
     Dosage: COUPLE OF YEARS AGO
     Route: 065
  3. SOOTHE XP [Suspect]
     Active Substance: LIGHT MINERAL OIL\MINERAL OIL
     Dosage: STARTED ON SUMMER FORM THE DATE OF FIRST FOLLOW-UP REPORT
     Route: 065
     Dates: start: 2020

REACTIONS (2)
  - Ocular discomfort [Recovered/Resolved]
  - Drug ineffective [Unknown]

NARRATIVE: CASE EVENT DATE: 2020
